FAERS Safety Report 8790139 (Version 3)
Quarter: 2012Q4

REPORT INFORMATION
  Report Type: 
  Country: US (occurrence: US)
  Receive Date: 20120917
  Receipt Date: 20121017
  Transmission Date: 20130627
  Serious: Yes (Hospitalization)
  Sender: FDA-Public Use
  Company Number: US-US-EMD SERONO, INC.-7160327

PATIENT
  Age: 26 Year
  Sex: Female
  Weight: 74 kg

DRUGS (5)
  1. REBIF [Suspect]
     Indication: MULTIPLE SCLEROSIS
     Route: 058
     Dates: start: 20120703, end: 20120731
  2. REBIF [Suspect]
     Route: 058
     Dates: start: 20120801, end: 20120910
  3. REBIF [Suspect]
     Route: 058
     Dates: start: 20120910
  4. VITAMIN D [Concomitant]
     Indication: VITAMIN D DEFICIENCY
     Dosage: Weekly
     Dates: start: 20120127
  5. VITAMIN B12 [Concomitant]
     Indication: FATIGUE
     Dosage: Daily
     Dates: start: 20120607

REACTIONS (2)
  - Colitis [Recovering/Resolving]
  - Multiple sclerosis relapse [Recovering/Resolving]
